FAERS Safety Report 6130908-0 (Version None)
Quarter: 2009Q1

REPORT INFORMATION
  Report Type: 
  Country: None (occurrence: None)
  Receive Date: 20090323
  Receipt Date: 20090312
  Transmission Date: 20090719
  Serious: Yes (Hospitalization)
  Sender: FDA-Public Use
  Company Number: 1000005296

PATIENT
  Age: 58 Year
  Sex: Female

DRUGS (9)
  1. CITALOPRAM HYDROBROMIDE [Suspect]
     Indication: SCHIZOAFFECTIVE DISORDER
     Dosage: 40 MG (40 MG, 1 IN 1 D), ORAL
     Route: 048
  2. AUGMENTIN '125' [Suspect]
     Indication: INFLAMMATION
     Dosage: 1875 MG (625 MG, 3 IN1 D )ORAL
     Route: 048
  3. .. [Suspect]
  4. ENTUMIN (TABLETS) [Suspect]
     Indication: SCHIZOAFFECTIVE DISORDER
     Dosage: 360 MG (120 MG, 3 IN 1 D), ORAL
     Route: 048
  5. HALDOL [Suspect]
     Indication: SCHIZOAFFECTIVE DISORDER
     Dosage: 14.2857 MG (300 MG, 1 IN 1 3 WK), INTRAVENOUS
     Route: 042
  6. TEMESTA (TABLETS) [Concomitant]
  7. EFFORTIL [Concomitant]
  8. LAMICTAL [Concomitant]
  9. ROCEPHIN [Concomitant]

REACTIONS (2)
  - CEREBRAL ATROPHY [None]
  - COMPLEX PARTIAL SEIZURES [None]
